FAERS Safety Report 4297580-6 (Version None)
Quarter: 2004Q1

REPORT INFORMATION
  Report Type: 
  Country: None (occurrence: None)
  Receive Date: 20040217
  Receipt Date: 20040217
  Transmission Date: 20041129
  Serious: Yes (Other)
  Sender: FDA-Public Use
  Company Number: None

PATIENT
  Age: 31 Year
  Sex: Male
  Weight: 63.05 kg

DRUGS (6)
  1. GEODON [Suspect]
     Indication: MAJOR DEPRESSION
     Dosage: 20 MG IM BID IF REFUSES PO DOSE
     Route: 048
     Dates: start: 20040119
  2. GEODON [Suspect]
     Indication: PSYCHOTIC DISORDER
     Dosage: 20 MG IM BID IF REFUSES PO DOSE
     Route: 048
     Dates: start: 20040119
  3. GEODON [Suspect]
     Indication: MAJOR DEPRESSION
     Dosage: 20 MG IM BID IF REFUSES PO DOSE
     Route: 048
     Dates: start: 20040121
  4. GEODON [Suspect]
     Indication: PSYCHOTIC DISORDER
     Dosage: 20 MG IM BID IF REFUSES PO DOSE
     Route: 048
     Dates: start: 20040121
  5. LEXAGON [Concomitant]
  6. GEODON [Concomitant]

REACTIONS (3)
  - OXYGEN SATURATION DECREASED [None]
  - RESPIRATORY RATE DECREASED [None]
  - TREMOR [None]
